FAERS Safety Report 7604489-6 (Version None)
Quarter: 2011Q3

REPORT INFORMATION
  Report Type: 
  Country: None (occurrence: None)
  Receive Date: 20110712
  Receipt Date: 20110704
  Transmission Date: 20111222
  Serious: No
  Sender: FDA-Public Use
  Company Number: ES-ELI_LILLY_AND_COMPANY-ES201107000601

PATIENT
  Sex: Male

DRUGS (1)
  1. CIALIS [Suspect]
     Dosage: UNK, QOD

REACTIONS (4)
  - RASH [None]
  - HYPERSENSITIVITY [None]
  - MYALGIA [None]
  - VISION BLURRED [None]
